FAERS Safety Report 7268387-2 (Version None)
Quarter: 2011Q1

REPORT INFORMATION
  Report Type: 
  Country: None (occurrence: None)
  Receive Date: 20110201
  Receipt Date: 20110121
  Transmission Date: 20110831
  Serious: Yes (Hospitalization)
  Sender: FDA-Public Use
  Company Number: US-GENENTECH-312755

PATIENT
  Age: 16 Year
  Sex: Male

DRUGS (1)
  1. NUTROPIN [Suspect]
     Indication: DWARFISM
     Route: 065

REACTIONS (1)
  - OSTEOCHONDRITIS [None]
